FAERS Safety Report 8571670-1 (Version None)
Quarter: 2012Q3

REPORT INFORMATION
  Report Type: 
  Country: None (occurrence: None)
  Receive Date: 20120806
  Receipt Date: 20120725
  Transmission Date: 20120928
  Serious: Yes (Other)
  Sender: FDA-Public Use
  Company Number: US-JNJFOC-20120714468

PATIENT
  Sex: Male
  Weight: 156.49 kg

DRUGS (5)
  1. DURAGESIC-100 [Suspect]
     Indication: BACK PAIN
     Route: 062
  2. METFORMIN HYDROCHLORIDE [Concomitant]
     Indication: DIABETES MELLITUS
     Route: 065
  3. DURAGESIC-100 [Suspect]
     Route: 062
     Dates: start: 20110101
  4. DURAGESIC-100 [Suspect]
     Route: 062
     Dates: start: 20110101, end: 20110101
  5. VICTOZA [Concomitant]
     Indication: DIABETES MELLITUS
     Route: 065
     Dates: end: 20120101

REACTIONS (4)
  - DRUG INEFFECTIVE [None]
  - DIABETES MELLITUS [None]
  - PRODUCT QUALITY ISSUE [None]
  - WRONG TECHNIQUE IN DRUG USAGE PROCESS [None]
